FAERS Safety Report 5665146-9 (Version None)
Quarter: 2008Q1

REPORT INFORMATION
  Report Type: 
  Country: None (occurrence: None)
  Receive Date: 20080314
  Receipt Date: 20080307
  Transmission Date: 20080703
  Serious: Yes (Death, Hospitalization)
  Sender: FDA-Public Use
  Company Number: MY-MERCK-0803MYS00010

PATIENT
  Age: 68 Year
  Sex: Male

DRUGS (6)
  1. SITAGLIPTIN PHOSPHATE [Suspect]
     Indication: DIABETES MELLITUS
     Route: 048
     Dates: start: 20080208, end: 20080214
  2. METFORMIN [Concomitant]
     Indication: DIABETES MELLITUS
     Route: 048
  3. GLICLAZIDE [Concomitant]
     Indication: DIABETES MELLITUS
     Route: 048
  4. NIFEDIPINE [Concomitant]
     Route: 048
  5. FUROSEMIDE [Concomitant]
     Route: 048
  6. SIMVASTATIN [Concomitant]
     Indication: HYPERCHOLESTEROLAEMIA
     Route: 048

REACTIONS (6)
  - ANAEMIA [None]
  - CARDIAC FAILURE [None]
  - PALLOR [None]
  - PYREXIA [None]
  - RENAL FAILURE [None]
  - ULCER HAEMORRHAGE [None]
